FAERS Safety Report 7493509-8 (Version None)
Quarter: 2011Q2

REPORT INFORMATION
  Report Type: 
  Country: None (occurrence: None)
  Receive Date: 20110512
  Receipt Date: 20110426
  Transmission Date: 20111010
  Serious: Yes (Hospitalization)
  Sender: FDA-Public Use
  Company Number: DSA_45503_2011

PATIENT
  Age: 69 Year
  Sex: Female

DRUGS (4)
  1. ENALAPRIL MALEATE [Suspect]
     Indication: HYPERTENSION
     Dosage: 5 MG, QD, ORAL
     Route: 048
  2. ENALAPRIL MALEATE [Suspect]
     Indication: ANGINA PECTORIS
     Dosage: 5 MG, QD, ORAL
     Route: 048
  3. NICORANDIL [Concomitant]
  4. NIFEDIPINE [Concomitant]

REACTIONS (2)
  - TOOTH EXTRACTION [None]
  - ANGIOEDEMA [None]
